FAERS Safety Report 9910555 (Version 2)
Quarter: 2014Q1

REPORT INFORMATION
  Report Type: Spontaneous
  Country: US (occurrence: US)
  Receive Date: 20140219
  Receipt Date: 20140314
  Transmission Date: 20141002
  Serious: No
  Sender: FDA-Public Use
  Company Number: US-B.I. PHARMACEUTICALS,INC./RIDGEFIELD-2014-BI-07045BP

PATIENT
  Sex: Female
  Weight: 56 kg

DRUGS (6)
  1. PRADAXA [Suspect]
     Indication: ATRIAL FIBRILLATION
     Dosage: 150 MG
     Route: 048
     Dates: start: 2012
  2. PRADAXA [Suspect]
     Dosage: 75 MG
     Route: 048
     Dates: start: 2013
  3. SYNTHROID [Concomitant]
     Indication: THYROID DISORDER
     Route: 048
  4. WATER PILL [Concomitant]
     Indication: FLUID RETENTION
     Route: 048
  5. BABY ASPIRIN [Concomitant]
     Route: 048
  6. DIGOXIN [Concomitant]
     Dosage: 0.125 MCG
     Route: 048

REACTIONS (5)
  - Decreased appetite [Unknown]
  - Hypoacusis [Not Recovered/Not Resolved]
  - Contusion [Not Recovered/Not Resolved]
  - Dyspepsia [Unknown]
  - Epistaxis [Unknown]
